FAERS Safety Report 25277873 (Version 1)
Quarter: 2025Q2

REPORT INFORMATION
  Report Type: Spontaneous
  Country: CN (occurrence: CN)
  Receive Date: 20250507
  Receipt Date: 20250507
  Transmission Date: 20250717
  Serious: Yes (Hospitalization, Disabling, Other)
  Sender: ALEXION PHARMACEUTICALS
  Company Number: CN-ASTRAZENECA-202505CHN000024CN

PATIENT
  Age: 67 Year

DRUGS (3)
  1. DAPAGLIFLOZIN [Suspect]
     Active Substance: DAPAGLIFLOZIN
     Indication: Diabetes mellitus
     Dosage: 210 MILLIGRAM, QD
  2. METFORMIN HYDROCHLORIDE [Concomitant]
     Active Substance: METFORMIN HYDROCHLORIDE
     Route: 065
  3. ACARBOSE [Concomitant]
     Active Substance: ACARBOSE
     Route: 065

REACTIONS (3)
  - Blood ketone body increased [Recovered/Resolved]
  - Dizziness [Unknown]
  - Gait disturbance [Unknown]
